FAERS Safety Report 18609210 (Version 4)
Quarter: 2021Q4

REPORT INFORMATION
  Report Type: Other
  Country: US (occurrence: None)
  Receive Date: 20201214
  Receipt Date: 20211214
  Transmission Date: 20220303
  Serious: No
  Sender: FDA-Public Use
  Company Number: US-ROCHE-2731274

PATIENT
  Age: 42 Year
  Sex: Female
  Weight: 78.088 kg

DRUGS (2)
  1. OCREVUS [Suspect]
     Active Substance: OCRELIZUMAB
     Indication: Relapsing-remitting multiple sclerosis
     Dosage: 300 MG AT DAY 1 AND DAY 15.?29/JUN/2020, 13/JUL/2020, 11/JAN/2021, 19/JUL/2021
     Route: 042
     Dates: start: 20200629
  2. VALACYCLOVIR [Concomitant]
     Active Substance: VALACYCLOVIR HYDROCHLORIDE
     Indication: Herpes virus infection
     Route: 048

REACTIONS (2)
  - COVID-19 [Recovering/Resolving]
  - Sinus headache [Not Recovered/Not Resolved]

NARRATIVE: CASE EVENT DATE: 20200901
